FAERS Safety Report 20490816 (Version 1)
Quarter: 2022Q1

REPORT INFORMATION
  Report Type: Spontaneous
  Country: US (occurrence: US)
  Receive Date: 20220218
  Receipt Date: 20220218
  Transmission Date: 20220423
  Serious: Yes (Other)
  Sender: FDA-Public Use
  Company Number: US-GLAXOSMITHKLINE-US2022GSK027433

PATIENT
  Sex: Male

DRUGS (12)
  1. ZANTAC [Suspect]
     Active Substance: RANITIDINE HYDROCHLORIDE
     Indication: Gastrooesophageal reflux disease
     Dosage: UNK UNK, QD
     Route: 065
     Dates: start: 199401, end: 201212
  2. ZANTAC [Suspect]
     Active Substance: RANITIDINE HYDROCHLORIDE
     Indication: Chest discomfort
     Dosage: UNK, 2X
     Route: 065
     Dates: start: 199401, end: 201212
  3. ZANTAC [Suspect]
     Active Substance: RANITIDINE HYDROCHLORIDE
     Indication: Gastrooesophageal reflux disease
     Dosage: UNK UNK, QD
     Route: 065
     Dates: start: 199401, end: 201212
  4. ZANTAC [Suspect]
     Active Substance: RANITIDINE HYDROCHLORIDE
     Indication: Chest discomfort
     Dosage: UNK, 2X
     Route: 065
     Dates: start: 199401, end: 201212
  5. RANITIDINE [Suspect]
     Active Substance: RANITIDINE
     Indication: Gastrooesophageal reflux disease
     Dosage: UNK, QD
     Route: 065
     Dates: start: 199401, end: 201212
  6. RANITIDINE [Suspect]
     Active Substance: RANITIDINE
     Indication: Chest discomfort
     Dosage: UNK, 2X
     Route: 065
     Dates: start: 199401, end: 201212
  7. RANITIDINE [Suspect]
     Active Substance: RANITIDINE
     Indication: Gastrooesophageal reflux disease
     Dosage: UNK, QD
     Route: 065
     Dates: start: 199401, end: 201212
  8. RANITIDINE [Suspect]
     Active Substance: RANITIDINE
     Indication: Chest discomfort
     Dosage: UNK, 2X
     Route: 065
     Dates: start: 199401, end: 201212
  9. RANITIDINE [Suspect]
     Active Substance: RANITIDINE
     Indication: Gastrooesophageal reflux disease
     Dosage: UNK, QD
     Route: 065
     Dates: start: 199401, end: 201212
  10. RANITIDINE [Suspect]
     Active Substance: RANITIDINE
     Indication: Chest discomfort
     Dosage: UNK, 2X
     Route: 065
     Dates: start: 199401, end: 201212
  11. RANITIDINE [Suspect]
     Active Substance: RANITIDINE
     Indication: Gastrooesophageal reflux disease
     Dosage: UNK UNK, QD
     Route: 065
     Dates: start: 199401, end: 201212
  12. RANITIDINE [Suspect]
     Active Substance: RANITIDINE
     Indication: Chest discomfort
     Dosage: UNK, 2X
     Route: 065
     Dates: start: 199401, end: 201212

REACTIONS (1)
  - Lung neoplasm malignant [Unknown]
